FAERS Safety Report 16264130 (Version 1)
Quarter: 2019Q2

REPORT INFORMATION
  Report Type: Spontaneous
  Country: US (occurrence: US)
  Receive Date: 20190502
  Receipt Date: 20190502
  Transmission Date: 20190711
  Serious: No
  Sender: FDA-Public Use
  Company Number: US-TEVA-2019-US-1042713

PATIENT
  Sex: Male

DRUGS (1)
  1. BACLOFEN. [Suspect]
     Active Substance: BACLOFEN
     Indication: NEUROPATHY PERIPHERAL
     Route: 065

REACTIONS (6)
  - Balance disorder [Unknown]
  - Fall [Unknown]
  - Pain in extremity [Unknown]
  - Gait disturbance [Unknown]
  - Abdominal discomfort [Unknown]
  - Arthralgia [Unknown]
